FAERS Safety Report 5016903-3 (Version None)
Quarter: 2006Q2

REPORT INFORMATION
  Report Type: 
  Country: None (occurrence: None)
  Receive Date: 20060602
  Receipt Date: 20060525
  Transmission Date: 20061013
  Serious: Yes (Other)
  Sender: FDA-Public Use
  Company Number: US-NOVOPROD-253633

PATIENT
  Age: 62 Year
  Sex: Female
  Weight: 65 kg

DRUGS (18)
  1. VAGIFEM [Suspect]
     Indication: ATROPHIC VULVOVAGINITIS
     Dates: start: 20050622, end: 20060521
  2. METOPROLOL SUCCINATE [Concomitant]
     Indication: HYPERTENSION
     Dates: start: 20050505
  3. RAMIPRIL [Concomitant]
     Indication: HYPERTENSION
     Dates: start: 20030101
  4. ATORVASTATIN CALCIUM [Concomitant]
     Indication: HYPERCHOLESTEROLAEMIA
     Dates: start: 20030101, end: 20050805
  5. DIPHENHYDRAMINE HYDROCHLORIDE [Concomitant]
     Indication: SINUSITIS
     Dates: start: 20030101
  6. FISH OIL [Concomitant]
     Indication: VITAMIN SUPPLEMENTATION
     Dates: start: 20050101
  7. SIMETHICON [Concomitant]
     Indication: FLATULENCE
     Dates: start: 20050101
  8. HERBAL LAXATIVE [Concomitant]
     Indication: CONSTIPATION
     Dates: start: 20050101
  9. ALLEGRA                            /01314201/ [Concomitant]
     Indication: SEASONAL ALLERGY
     Dates: start: 20050621, end: 20050624
  10. FAMCICLOVIR [Concomitant]
     Indication: HERPES ZOSTER
     Dates: start: 20050815, end: 20050822
  11. PAXIL [Concomitant]
     Indication: ANXIETY
     Dates: start: 20051108, end: 20051219
  12. AMITRIPTYLINE HCL [Concomitant]
     Indication: ANXIETY
     Dates: start: 20051108, end: 20051219
  13. FLUVACCIN [Concomitant]
     Indication: PROPHYLAXIS
     Dates: start: 20051213, end: 20051213
  14. SUDAFED PE [Concomitant]
     Indication: LOWER RESPIRATORY TRACT INFECTION
     Dates: start: 20051219, end: 20051229
  15. IBUPROFEN [Concomitant]
     Indication: LOWER RESPIRATORY TRACT INFECTION
     Dates: start: 20051219
  16. TUSSIN DM [Concomitant]
     Indication: LOWER RESPIRATORY TRACT INFECTION
     Dates: start: 20051221, end: 20051229
  17. TETANUS VACCINE [Concomitant]
     Indication: PROPHYLAXIS
     Dates: start: 20060408, end: 20060408
  18. TYLENOL                            /00020001/ [Concomitant]
     Indication: HERPES ZOSTER
     Dates: start: 20050819, end: 20050819

REACTIONS (2)
  - ENDOMETRIAL CANCER [None]
  - VAGINAL HAEMORRHAGE [None]
